FAERS Safety Report 15901392 (Version 1)
Quarter: 2019Q1

REPORT INFORMATION
  Report Type: Spontaneous
  Country: IT (occurrence: IT)
  Receive Date: 20190201
  Receipt Date: 20190201
  Transmission Date: 20190417
  Serious: Yes (Other)
  Sender: FDA-Public Use
  Company Number: IT-TEVA-2019-IT-1006112

PATIENT
  Age: 87 Year
  Sex: Male

DRUGS (6)
  1. FUROSEMIDE. [Suspect]
     Active Substance: FUROSEMIDE
     Indication: HYPERTENSION
     Dosage: 25 MILLIGRAM DAILY;
     Route: 048
     Dates: start: 20180101, end: 20181209
  2. SEQUACOR [Concomitant]
     Active Substance: BISOPROLOL
  3. LOSARTAN POTASSICO/IDROCLOROTIAZIDE [Suspect]
     Active Substance: HYDROCHLOROTHIAZIDE\LOSARTAN POTASSIUM
     Indication: HYPERTENSION
     Dosage: 125 MILLIGRAM DAILY;
     Route: 048
     Dates: start: 20180101, end: 20181209
  4. MEDROL 16 MG COMPRESSE [Concomitant]
  5. LACIREX [Concomitant]
     Active Substance: LACIDIPINE
  6. ALLOPURINOL. [Concomitant]
     Active Substance: ALLOPURINOL

REACTIONS (3)
  - Hypokalaemia [Recovering/Resolving]
  - Orthostatic hypotension [Recovering/Resolving]
  - Syncope [Recovering/Resolving]

NARRATIVE: CASE EVENT DATE: 20181209
